FAERS Safety Report 25050863 (Version 1)
Quarter: 2025Q1

REPORT INFORMATION
  Report Type: Spontaneous
  Country: CN (occurrence: CN)
  Receive Date: 20250307
  Receipt Date: 20250307
  Transmission Date: 20250409
  Serious: Yes (Hospitalization)
  Sender: BAYER HEALTHCARE PHARMACEUTICALS INC.
  Company Number: CN-BAYER-2025A029995

PATIENT
  Age: 56 Year
  Sex: Male
  Weight: 71 kg

DRUGS (2)
  1. GADOBUTROL [Suspect]
     Active Substance: GADOBUTROL
     Indication: Computerised tomogram
     Route: 042
     Dates: start: 20250119, end: 20250119
  2. GADOBUTROL [Suspect]
     Active Substance: GADOBUTROL
     Indication: Hepatic mass

REACTIONS (6)
  - Dermatitis exfoliative generalised [Recovering/Resolving]
  - Pyrexia [Recovered/Resolved]
  - Scratch [None]
  - Scab [None]
  - Lymphadenopathy [None]
  - Pruritus [Recovering/Resolving]

NARRATIVE: CASE EVENT DATE: 20250101
